FAERS Safety Report 9068324 (Version 1)
Quarter: 2013Q1

REPORT INFORMATION
  Report Type: Spontaneous
  Country: US (occurrence: None)
  Receive Date: 20130212
  Receipt Date: 20130212
  Transmission Date: 20140127
  Serious: No
  Sender: FDA-Public Use
  Company Number: None

PATIENT
  Age: 45 Year
  Sex: Female
  Weight: 52.16 kg

DRUGS (2)
  1. LOSARTAN 25 MG WATSON PHARMACEUTICALS [Suspect]
     Indication: BLOOD PRESSURE INCREASED
     Dosage: 25 MG  ONCE DAILY  PO
     Route: 048
     Dates: start: 20130104, end: 20130206
  2. LOSARTAN 25 MG WATSON PHARMACEUTICALS [Suspect]
     Indication: PROTEINURIA
     Dosage: 25 MG  ONCE DAILY  PO
     Route: 048
     Dates: start: 20130104, end: 20130206

REACTIONS (15)
  - Alopecia [None]
  - Anxiety [None]
  - Heart rate increased [None]
  - Palpitations [None]
  - Feeling abnormal [None]
  - Cough [None]
  - Dry mouth [None]
  - Nail disorder [None]
  - Decreased appetite [None]
  - Depression [None]
  - Fatigue [None]
  - Headache [None]
  - Tinnitus [None]
  - Insomnia [None]
  - Quality of life decreased [None]
